FAERS Safety Report 10344922 (Version 3)
Quarter: 2019Q1

REPORT INFORMATION
  Report Type: Spontaneous
  Country: US (occurrence: US)
  Receive Date: 20140728
  Receipt Date: 20190215
  Transmission Date: 20190417
  Serious: No
  Sender: FDA-Public Use
  Company Number: US-PFIZER INC-2014205358

PATIENT
  Age: 29 Year
  Sex: Female

DRUGS (11)
  1. APO-PREDNISONE [Concomitant]
     Active Substance: PREDNISONE
  2. LYRICA [Suspect]
     Active Substance: PREGABALIN
     Indication: PAIN
     Dosage: 150 MG, 3X/DAY
     Route: 048
  3. VICODIN ES [Concomitant]
     Active Substance: ACETAMINOPHEN\HYDROCODONE BITARTRATE
     Indication: PAIN
     Dosage: 7.5 (HYDROCODONE) 300 (PARACETAMOL) MG (TAKE 1 TABLET BY ORAL ROUTE EVERY 6 HOURS AS NEEDED)
     Dates: start: 20131101
  4. LYRICA [Suspect]
     Active Substance: PREGABALIN
     Dosage: 150 MG, 5 TIMES DAILY; 750 MG PER DAY)
     Route: 048
  5. IBUPROFEN. [Concomitant]
     Active Substance: IBUPROFEN
     Indication: PAIN
     Dosage: 200 MG, 4X/DAY
  6. LYRICA [Suspect]
     Active Substance: PREGABALIN
     Dosage: 150 MG, 4X/DAY
     Route: 048
  7. IBUPROFEN. [Concomitant]
     Active Substance: IBUPROFEN
     Dosage: 800 MG, 2X/DAY
     Route: 048
  8. LYRICA [Suspect]
     Active Substance: PREGABALIN
     Dosage: 50 MG: 1-2-2 THREE TIMES A DAY FOR 1 MONTH
  9. LYRICA [Suspect]
     Active Substance: PREGABALIN
     Dosage: 50 MG, 1-1-2 THREE TIMES A DAY
  10. LYRICA [Suspect]
     Active Substance: PREGABALIN
     Dosage: 50 MG, 3X/DAY (1 THREE TIMES A DAY)
  11. ACETAMINOPHEN W/HYDROCODONE BITARTRATE [Concomitant]
     Active Substance: ACETAMINOPHEN\HYDROCODONE BITARTRATE
     Indication: PAIN
     Dosage: 7.5 (HYDROCODONE ) 325 (ACETAMINOPHEN)
     Route: 048
     Dates: start: 20130727

REACTIONS (4)
  - Overdose [Unknown]
  - Hypertension [Unknown]
  - Off label use [Unknown]
  - Drug ineffective [Unknown]

NARRATIVE: CASE EVENT DATE: 20140320
